FAERS Safety Report 22043281 (Version 3)
Quarter: 2023Q2

REPORT INFORMATION
  Report Type: Report from Study
  Country: CN (occurrence: CN)
  Receive Date: 20230228
  Receipt Date: 20230421
  Transmission Date: 20230721
  Serious: Yes (Hospitalization)
  Sender: FDA-Public Use
  Company Number: CN-TAKEDA-2023TUS019550

PATIENT
  Age: 26 Year
  Sex: Female
  Weight: 46 kg

DRUGS (1)
  1. VEDOLIZUMAB [Suspect]
     Active Substance: VEDOLIZUMAB
     Indication: Crohn^s disease
     Dosage: 300 MILLIGRAM
     Route: 042
     Dates: start: 20230201

REACTIONS (1)
  - Thyroid mass [Recovering/Resolving]

NARRATIVE: CASE EVENT DATE: 20230218
